FAERS Safety Report 12528520 (Version 1)
Quarter: 2016Q3

REPORT INFORMATION
  Report Type: Spontaneous
  Country: BR (occurrence: BR)
  Receive Date: 20160705
  Receipt Date: 20160705
  Transmission Date: 20161109
  Serious: Yes (Other)
  Sender: FDA-Public Use
  Company Number: BR-PFIZER INC-2016324556

PATIENT
  Age: 76 Year
  Sex: Female
  Weight: 45 kg

DRUGS (11)
  1. QUETIAPINA [Concomitant]
     Active Substance: QUETIAPINE
     Indication: BIPOLAR DISORDER
     Dosage: 1 TABLET DAILY
     Route: 048
     Dates: start: 2012
  2. QUETIAPINA [Concomitant]
     Active Substance: QUETIAPINE
     Indication: SCHIZOPHRENIA
  3. FENERGAN /00033001/ [Concomitant]
     Active Substance: PROMETHAZINE HYDROCHLORIDE
     Indication: SCHIZOPHRENIA
  4. FRONTAL [Suspect]
     Active Substance: ALPRAZOLAM
     Dosage: 1 MG, 3X/DAY
     Route: 048
     Dates: start: 2013
  5. OLANZAPINA [Concomitant]
     Active Substance: OLANZAPINE
     Indication: BIPOLAR DISORDER
     Dosage: UNK
     Route: 048
     Dates: start: 2013
  6. OMEPRAZOLE. [Concomitant]
     Active Substance: OMEPRAZOLE
     Indication: GASTRIC DISORDER
     Dosage: UNK, 2X/DAY
     Dates: start: 2012
  7. FENERGAN /00033001/ [Concomitant]
     Active Substance: PROMETHAZINE HYDROCHLORIDE
     Indication: BIPOLAR DISORDER
     Dosage: 1 TABLET 25 MG, AT NIGHT
     Route: 048
     Dates: start: 2012
  8. ALPRAZOLAM. [Concomitant]
     Active Substance: ALPRAZOLAM
     Indication: BIPOLAR DISORDER
     Dosage: UNK, 3X/DAY
  9. OLANZAPINA [Concomitant]
     Active Substance: OLANZAPINE
     Indication: SCHIZOPHRENIA
  10. ALPRAZOLAM. [Concomitant]
     Active Substance: ALPRAZOLAM
     Indication: SCHIZOPHRENIA
  11. RANITIDINE. [Concomitant]
     Active Substance: RANITIDINE
     Indication: GASTRIC DISORDER
     Dosage: 150 MG, 1X/DAY
     Dates: start: 2012

REACTIONS (6)
  - Agitation [Unknown]
  - Femur fracture [Unknown]
  - Gait disturbance [Unknown]
  - Crying [Unknown]
  - Nervousness [Unknown]
  - Drug dependence [Unknown]

NARRATIVE: CASE EVENT DATE: 201511
